FAERS Safety Report 8177498-9 (Version None)
Quarter: 2012Q1

REPORT INFORMATION
  Report Type: 
  Country: None (occurrence: None)
  Receive Date: 20120301
  Receipt Date: 20120222
  Transmission Date: 20120608
  Serious: Yes (Hospitalization)
  Sender: FDA-Public Use
  Company Number: US-ACTELION-A-US2012-60346

PATIENT

DRUGS (12)
  1. SENSIPAR [Concomitant]
  2. MINOXIDIL [Concomitant]
  3. PROTONIX [Concomitant]
  4. TRACLEER [Suspect]
     Indication: PULMONARY ARTERIAL HYPERTENSION
     Dosage: 62.5
     Route: 048
     Dates: start: 20120101
  5. COUMADIN [Concomitant]
  6. TRACLEER [Suspect]
     Dosage: 125
     Route: 048
     Dates: start: 20101021, end: 20120101
  7. VITAMIN B COMPLEX CAP [Concomitant]
  8. PHOSLO [Concomitant]
  9. CLARITIN [Concomitant]
  10. FOSRENOL [Concomitant]
  11. NORVASC [Concomitant]
  12. METOPROLOL SUCCINATE [Concomitant]

REACTIONS (8)
  - HYPOTENSION [None]
  - SYSTEMIC INFLAMMATORY RESPONSE SYNDROME [None]
  - SEPSIS [None]
  - LEUKOCYTOSIS [None]
  - CHILLS [None]
  - CLOSTRIDIUM BACTERAEMIA [None]
  - PYREXIA [None]
  - UPPER RESPIRATORY TRACT INFECTION [None]
